FAERS Safety Report 9148780 (Version 2)
Quarter: 2013Q3

REPORT INFORMATION
  Report Type: Spontaneous
  Country: ES (occurrence: ES)
  Receive Date: 20130308
  Receipt Date: 20130716
  Transmission Date: 20140515
  Serious: Yes (Other)
  Sender: FDA-Public Use
  Company Number: ES-AMGEN-ESPSP2013007261

PATIENT
  Age: 81 Year
  Sex: Female

DRUGS (4)
  1. PROLIA [Suspect]
     Indication: OSTEOPOROSIS
     Dosage: UNK
     Dates: start: 20120228, end: 20120901
  2. CALCIUM [Concomitant]
  3. VITAMIN D                          /00107901/ [Concomitant]
  4. THYROID THERAPY [Concomitant]

REACTIONS (17)
  - Arthropathy [Unknown]
  - Dysstasia [Unknown]
  - Nausea [Not Recovered/Not Resolved]
  - Pain [Not Recovered/Not Resolved]
  - Malaise [Not Recovered/Not Resolved]
  - Joint effusion [Unknown]
  - Oedema [Not Recovered/Not Resolved]
  - Arthritis [Unknown]
  - Haematoma [Unknown]
  - Joint swelling [Not Recovered/Not Resolved]
  - Mass [Unknown]
  - Local swelling [Not Recovered/Not Resolved]
  - Feeling abnormal [Unknown]
  - Asthenia [Unknown]
  - Dizziness [Unknown]
  - Anxiety [Unknown]
  - Swelling [Unknown]
